FAERS Safety Report 4305670-4 (Version None)
Quarter: 2004Q1

REPORT INFORMATION
  Report Type: 
  Country: None (occurrence: None)
  Receive Date: 20040226
  Receipt Date: 20040108
  Transmission Date: 20041129
  Serious: Yes (Other)
  Sender: FDA-Public Use
  Company Number: US-BRISTOL-MYERS SQUIBB COMPANY-12472627

PATIENT
  Age: 74 Year
  Sex: Female

DRUGS (6)
  1. ABILIFY [Suspect]
     Indication: BIPOLAR DISORDER
     Dosage: 30 MG Q HS
     Route: 002
     Dates: start: 20030814, end: 20030903
  2. METFORMIN HCL [Concomitant]
  3. VERAMIL [Concomitant]
  4. ASPIRIN [Concomitant]
  5. GLIPIZIDE [Concomitant]
  6. ASCORBIC ACID [Concomitant]

REACTIONS (3)
  - DYSTONIA [None]
  - NAUSEA [None]
  - VOMITING [None]
